FAERS Safety Report 10498117 (Version 1)
Quarter: 2014Q4

REPORT INFORMATION
  Report Type: Spontaneous
  Country: PT (occurrence: PT)
  Receive Date: 20141006
  Receipt Date: 20141006
  Transmission Date: 20150528
  Serious: Yes (Disabling, Other)
  Sender: FDA-Public Use
  Company Number: PT-TEVA-511534ISR

PATIENT
  Age: 18 Year
  Sex: Male
  Weight: 75 kg

DRUGS (7)
  1. OLANZAPINA GENERIS [Suspect]
     Active Substance: OLANZAPINE
     Indication: PROPHYLAXIS
     Dosage: 07/13-09/13 - 5MG; 09/13-03/14 - 10 MG; 03/14-07/14 - 15 MG
     Route: 048
     Dates: start: 201307, end: 201407
  2. PRIADEL [Concomitant]
     Active Substance: LITHIUM CARBONATE
     Indication: PROPHYLAXIS
     Route: 048
  3. OMEPRAZOL [Concomitant]
     Active Substance: OMEPRAZOLE
     Indication: PROPHYLAXIS
     Route: 048
  4. DIPLEXIL-R [Concomitant]
     Indication: PROPHYLAXIS
     Route: 048
  5. OLANZAPINA RATIOPHARM [Suspect]
     Active Substance: OLANZAPINE
     Indication: PROPHYLAXIS
     Dosage: 07/13-09/13 - 5MG; 09/13-03/14 - 10 MG; 03/14-07/14 - 15 MG
     Route: 048
     Dates: start: 201307, end: 201407
  6. LEVOTIROXINA S?DICA [Concomitant]
     Indication: PROPHYLAXIS
     Route: 048
  7. RITALINA LA [Concomitant]
     Indication: PROPHYLAXIS
     Route: 048

REACTIONS (5)
  - Agitation [Recovered/Resolved]
  - Abnormal behaviour [Recovered/Resolved]
  - Drug ineffective [Recovered/Resolved]
  - Product substitution issue [Unknown]
  - Mania [Recovered/Resolved]

NARRATIVE: CASE EVENT DATE: 201308
